FAERS Safety Report 5954433-2 (Version None)
Quarter: 2008Q4

REPORT INFORMATION
  Report Type: 
  Country: None (occurrence: None)
  Receive Date: 20081113
  Receipt Date: 20081113
  Transmission Date: 20090506
  Serious: Yes (Hospitalization)
  Sender: FDA-Public Use
  Company Number: None

PATIENT
  Sex: Female
  Weight: 110.08 kg

DRUGS (7)
  1. CARBOPLATIN [Suspect]
     Dosage: 739 MG
     Dates: start: 20080929, end: 20080929
  2. TAXOL [Suspect]
     Dosage: 350 MG
     Dates: end: 20080929
  3. CLONIDINE [Concomitant]
  4. INDERAL [Concomitant]
  5. LASIX [Concomitant]
  6. NORCO 5-325 [Concomitant]
  7. ZOFRAN [Concomitant]

REACTIONS (9)
  - ANOREXIA [None]
  - FAILURE TO THRIVE [None]
  - FASCIAL INFECTION [None]
  - NAUSEA [None]
  - PYREXIA [None]
  - SEPSIS [None]
  - VOMITING [None]
  - WOUND DEHISCENCE [None]
  - WOUND INFECTION [None]
